FAERS Safety Report 17658936 (Version 1)
Quarter: 2020Q2

REPORT INFORMATION
  Report Type: Spontaneous
  Country: US (occurrence: US)
  Receive Date: 20200413
  Receipt Date: 20200413
  Transmission Date: 20200713
  Serious: No
  Sender: FDA-Public Use
  Company Number: US-SHIRE-US202013146

PATIENT
  Age: 70 Year
  Sex: Female

DRUGS (1)
  1. LIALDA [Suspect]
     Active Substance: MESALAMINE
     Indication: GASTROINTESTINAL PAIN
     Dosage: 1.2 GRAM, 1X/DAY:QD
     Route: 065

REACTIONS (3)
  - Product availability issue [Unknown]
  - Intentional product use issue [Unknown]
  - Pyrexia [Unknown]

NARRATIVE: CASE EVENT DATE: 20200404
